FAERS Safety Report 4384039-0 (Version None)
Quarter: 2004Q2

REPORT INFORMATION
  Report Type: 
  Country: None (occurrence: None)
  Receive Date: 20040621
  Receipt Date: 20040611
  Transmission Date: 20050107
  Serious: Yes (Hospitalization, Other)
  Sender: FDA-Public Use
  Company Number: HQWYE453815JUN04

PATIENT
  Age: 44 Year
  Sex: Female
  Weight: 62.3 kg

DRUGS (16)
  1. RAPAMUNE [Suspect]
     Indication: PROPHYLAXIS AGAINST TRANSPLANT REJECTION
     Dosage: 6 MG 1X PER 1 DAY, ORAL
     Route: 048
     Dates: start: 20040323
  2. NEORAL [Suspect]
     Indication: PROPHYLAXIS AGAINST TRANSPLANT REJECTION
     Dosage: 330 MG 1X PER 1 DAY, ORAL
     Route: 048
  3. PREDNISONE TAB [Concomitant]
  4. VALCYTE [Concomitant]
  5. DAPSONE [Concomitant]
  6. NYSTATIN [Concomitant]
  7. MULTIVIT (VITAMINS NOS) [Concomitant]
  8. FOLIC ACID [Concomitant]
  9. PROTONIX [Concomitant]
  10. LOPRESSOR [Concomitant]
  11. CATAPRES [Concomitant]
  12. PROCARDIA [Concomitant]
  13. FUROSEMIDE [Concomitant]
  14. PROZAC [Concomitant]
  15. EPOGEN [Concomitant]
  16. PREMARIN [Concomitant]

REACTIONS (2)
  - BLOOD CREATININE INCREASED [None]
  - DRUG INTERACTION [None]
